FAERS Safety Report 6886057-7 (Version None)
Quarter: 2010Q3

REPORT INFORMATION
  Report Type: 
  Country: None (occurrence: None)
  Receive Date: 20100729
  Receipt Date: 20080625
  Transmission Date: 20110219
  Serious: Yes (Other)
  Sender: FDA-Public Use
  Company Number: US-PFIZER INC-2008050027

PATIENT
  Age: 47 Year
  Sex: Male
  Weight: 82.55 kg

DRUGS (1)
  1. CELEBREX [Suspect]
     Indication: MYALGIA
     Dates: start: 20080601, end: 20080601

REACTIONS (3)
  - HYPERSENSITIVITY [None]
  - PRURITUS [None]
  - RASH [None]
